FAERS Safety Report 16623473 (Version 2)
Quarter: 2019Q3

REPORT INFORMATION
  Report Type: Report from Study
  Country: CO (occurrence: CO)
  Receive Date: 20190724
  Receipt Date: 20190729
  Transmission Date: 20191004
  Serious: Yes (Hospitalization, Other)
  Sender: FDA-Public Use
  Company Number: CO-ASTELLAS-2018US047625

PATIENT
  Age: 8 Year
  Sex: Female
  Weight: 17 kg

DRUGS (5)
  1. MYCOPHENOLATE [Concomitant]
     Active Substance: MYCOPHENOLIC ACID
     Indication: RENAL TRANSPLANT
     Dosage: 540 MG (180 MG + 360 MG+360 MG), ONCE DAILY
     Route: 048
     Dates: start: 20170226
  2. TACROLIMUS. [Suspect]
     Active Substance: TACROLIMUS
     Dosage: 7 MG(TACROLIMUS 1 CAPSULE OF 5MG AND 2 CAPSULES OF 1MG), ONCE DAILY
     Route: 048
  3. PREDNISOLONE. [Concomitant]
     Active Substance: PREDNISOLONE
     Indication: TRANSPLANT
     Dosage: 2.5 CM, ONCE DAILY
     Route: 048
     Dates: start: 20170226
  4. TACROLIMUS. [Suspect]
     Active Substance: TACROLIMUS
     Indication: RENAL TRANSPLANT
     Route: 048
  5. TACROLIMUS. [Suspect]
     Active Substance: TACROLIMUS
     Route: 048
     Dates: start: 20170226

REACTIONS (4)
  - Blood creatinine increased [Recovering/Resolving]
  - Immunosuppressant drug level increased [Recovering/Resolving]
  - Strabismus [Recovering/Resolving]
  - Central nervous system neoplasm [Recovering/Resolving]

NARRATIVE: CASE EVENT DATE: 201810
